FAERS Safety Report 5653464-X (Version None)
Quarter: 2008Q1

REPORT INFORMATION
  Report Type: 
  Country: None (occurrence: None)
  Receive Date: 20080306
  Receipt Date: 20080304
  Transmission Date: 20080703
  Serious: Yes (Other)
  Sender: FDA-Public Use
  Company Number: D0056406A

PATIENT
  Age: 12 Year
  Sex: Female

DRUGS (5)
  1. CEFUROXIM-RATIOPHARM [Suspect]
     Dosage: 250MG PER DAY
     Route: 048
     Dates: start: 20080124, end: 20080130
  2. VALPROIC ACID [Concomitant]
     Route: 048
  3. PREDNISONE TAB [Concomitant]
     Route: 048
  4. MYCOPHENOLIC ACID [Concomitant]
     Route: 048
  5. LEVETIRACETAM [Concomitant]
     Route: 048

REACTIONS (1)
  - CONVULSION [None]
